FAERS Safety Report 5615714-5 (Version None)
Quarter: 2008Q1

REPORT INFORMATION
  Report Type: 
  Country: None (occurrence: None)
  Receive Date: 20080201
  Receipt Date: 20080117
  Transmission Date: 20080703
  Serious: Yes (Other)
  Sender: FDA-Public Use
  Company Number: 2007S1013350

PATIENT
  Age: 13 Year
  Sex: Female
  Weight: 37.195 kg

DRUGS (8)
  1. AZATHIOPRINE [Suspect]
     Indication: RENAL TRANSPLANT
     Dosage: 75 MG; X1; ORAL
     Route: 048
     Dates: start: 20071205, end: 20071205
  2. PROGRAF [Concomitant]
  3. PROGRAF [Concomitant]
  4. SODIUM BICARBONATE [Concomitant]
  5. PREDNISONE TAB [Concomitant]
  6. PEPCID /00706001/ [Concomitant]
  7. EPIPEN /00003901/ [Concomitant]
  8. ALBUTEROL [Concomitant]

REACTIONS (4)
  - ANAPHYLACTIC REACTION [None]
  - BRONCHOSPASM [None]
  - DYSPNOEA [None]
  - REACTION TO DRUG EXCIPIENTS [None]
